FAERS Safety Report 18043554 (Version 1)
Quarter: 2020Q3

REPORT INFORMATION
  Report Type: Spontaneous
  Country: US (occurrence: US)
  Receive Date: 20200717
  Receipt Date: 20200717
  Transmission Date: 20201103
  Serious: No
  Sender: FDA-Public Use
  Company Number: None

PATIENT
  Age: 33 Year
  Sex: Female
  Weight: 47.25 kg

DRUGS (2)
  1. AIMOVIG [Suspect]
     Active Substance: ERENUMAB-AOOE
     Indication: OPTIC NEURITIS
     Dosage: ?          OTHER FREQUENCY:MONTHLY;OTHER ROUTE:INJECTION UNDER SKIN?
     Dates: start: 20200518, end: 20200618
  2. AIMOVIG [Suspect]
     Active Substance: ERENUMAB-AOOE
     Indication: MIGRAINE
     Dosage: ?          OTHER FREQUENCY:MONTHLY;OTHER ROUTE:INJECTION UNDER SKIN?
     Dates: start: 20200518, end: 20200618

REACTIONS (18)
  - Menorrhagia [None]
  - Dyspnoea [None]
  - Pain [None]
  - Menstruation irregular [None]
  - Constipation [None]
  - Insomnia [None]
  - Paresis [None]
  - Panic attack [None]
  - Chills [None]
  - Vomiting [None]
  - Tinnitus [None]
  - Dizziness [None]
  - Anxiety [None]
  - Nausea [None]
  - Faeces hard [None]
  - Blood urine present [None]
  - Food poisoning [None]
  - Tremor [None]

NARRATIVE: CASE EVENT DATE: 20200615
